FAERS Safety Report 14339758 (Version 1)
Quarter: 2017Q4

REPORT INFORMATION
  Report Type: Report from Study
  Country: ES (occurrence: ES)
  Receive Date: 20171230
  Receipt Date: 20171230
  Transmission Date: 20180321
  Serious: Yes (Life-Threatening)
  Sender: FDA-Public Use
  Company Number: ES-BAUSCH-BL-2017-035017

PATIENT
  Age: 13 Year
  Sex: Male

DRUGS (9)
  1. ERWINA - ERWINASE (ASPARAGINASE ERWINIA CHRYSANTHEMI) [Suspect]
     Active Substance: ASPARAGINASE ERWINIA CHRYSANTHEMI
     Indication: ACUTE LYMPHOCYTIC LEUKAEMIA
     Dosage: 10.000 UI INJECTABLE?9 DAYS
     Route: 030
     Dates: start: 20170821, end: 20170829
  2. CITARABINA (124A) [Suspect]
     Active Substance: CYTARABINE
     Indication: ACUTE LYMPHOCYTIC LEUKAEMIA
     Route: 042
     Dates: start: 20170820, end: 20170821
  3. SEPTRIN FORTE [Concomitant]
     Active Substance: SULFAMETHOXAZOLE\TRIMETHOPRIM
     Indication: PROPHYLAXIS
     Dosage: 160 MG/800 MG COMPRESSES, 20 TABLETS
     Route: 048
     Dates: start: 20170815
  4. MERCAPTOPURINA (405A) [Suspect]
     Active Substance: MERCAPTOPURINE
     Indication: ACUTE LYMPHOCYTIC LEUKAEMIA
     Route: 042
     Dates: start: 20170816, end: 20170822
  5. METOTREXATO (418A) [Suspect]
     Active Substance: METHOTREXATE
     Indication: ACUTE LYMPHOCYTIC LEUKAEMIA
     Route: 042
     Dates: start: 20170816, end: 20170818
  6. DEXAMETASONA (722A) [Concomitant]
     Active Substance: DEXAMETHASONE
     Indication: PROPHYLAXIS
     Route: 047
     Dates: start: 20170822, end: 20170824
  7. DEXAMETASONA (722A) [Suspect]
     Active Substance: DEXAMETHASONE
     Indication: ACUTE LYMPHOCYTIC LEUKAEMIA
     Route: 042
     Dates: start: 20170816, end: 20170822
  8. VINCRISTINA SULFATO (809SU) [Suspect]
     Active Substance: VINCRISTINE SULFATE
     Indication: ACUTE LYMPHOCYTIC LEUKAEMIA
     Dosage: 6 DAYS
     Route: 042
     Dates: start: 20170816, end: 20170821
  9. ACICLOVIR (201A) [Concomitant]
     Indication: PROPHYLAXIS
     Route: 048
     Dates: start: 20170815

REACTIONS (4)
  - Pancytopenia [Recovered/Resolved]
  - Catheter site infection [Recovered/Resolved]
  - Stomatitis [Recovered/Resolved]
  - Anal inflammation [Recovered/Resolved]

NARRATIVE: CASE EVENT DATE: 20170824
